FAERS Safety Report 5151360-8 (Version None)
Quarter: 2006Q4

REPORT INFORMATION
  Report Type: 
  Country: None (occurrence: None)
  Receive Date: 20061114
  Receipt Date: 20061114
  Transmission Date: 20070319
  Serious: No
  Sender: FDA-Public Use
  Company Number: None

PATIENT
  Age: 38 Year
  Sex: Male
  Weight: 86.1834 kg

DRUGS (1)
  1. ACETAMINOPHEN [Suspect]
     Dosage: 3 PILLS EVERY 4-6
     Dates: start: 20061102, end: 20061105

REACTIONS (2)
  - PAROSMIA [None]
  - PHARMACEUTICAL PRODUCT COMPLAINT [None]
